FAERS Safety Report 5275433-4 (Version None)
Quarter: 2007Q1

REPORT INFORMATION
  Report Type: 
  Country: None (occurrence: None)
  Receive Date: 20061213
  Receipt Date: 20040617
  Transmission Date: 20070707
  Serious: Yes (Hospitalization)
  Sender: FDA-Public Use
  Company Number: 2004UW09502

PATIENT
  Age: 31 Year
  Sex: Female
  Weight: 49.8957 kg

DRUGS (12)
  1. SEROQUEL [Suspect]
     Indication: BIPOLAR DISORDER
     Dosage: MG HS AND 25 MG TID PRN
  2. SEROQUEL [Suspect]
     Indication: DEPRESSION
     Dosage: MG HS AND 25 MG TID PRN
  3. SEROQUEL [Suspect]
     Indication: BIPOLAR DISORDER
     Dates: start: 20040329, end: 20040511
  4. SEROQUEL [Suspect]
     Indication: DEPRESSION
     Dates: start: 20040329, end: 20040511
  5. SEROQUEL [Suspect]
     Indication: BIPOLAR DISORDER
     Dates: start: 20040501
  6. SEROQUEL [Suspect]
     Indication: DEPRESSION
     Dates: start: 20040501
  7. NEURONTIN [Concomitant]
  8. LEXAPRO [Concomitant]
  9. HUMALOG [Concomitant]
  10. LANTUS [Concomitant]
  11. LORTAB [Concomitant]
  12. DURAGESIC-100 [Concomitant]

REACTIONS (2)
  - BLOOD GLUCOSE INCREASED [None]
  - MUSCLE TWITCHING [None]
